FAERS Safety Report 9303107 (Version 1)
Quarter: 2013Q2

REPORT INFORMATION
  Report Type: Report from Study
  Country: US (occurrence: US)
  Receive Date: 20130522
  Receipt Date: 20130522
  Transmission Date: 20140414
  Serious: Yes (Other)
  Sender: FDA-Public Use
  Company Number: PHEH2013US008117

PATIENT
  Age: 39 Year
  Sex: Male

DRUGS (6)
  1. GILENYA [Suspect]
     Indication: MULTIPLE SCLEROSIS
     Dosage: 1 DF, QD
     Route: 048
     Dates: start: 20130401
  2. BACLOFEN [Concomitant]
     Dosage: 30 MG, TID
     Route: 048
  3. MARIJUANA [Concomitant]
  4. VITAMAN [Concomitant]
  5. FLEXEN (DICLOFENAC POTASSIUM) [Concomitant]
     Dosage: 10 MG, PRN
     Route: 048
  6. CELEXA [Concomitant]
     Dosage: 20 MG, QD
     Route: 048

REACTIONS (3)
  - Tooth disorder [Recovering/Resolving]
  - Toothache [Recovering/Resolving]
  - Facial pain [Recovering/Resolving]
